FAERS Safety Report 20628305 (Version 1)
Quarter: 2022Q1

REPORT INFORMATION
  Report Type: Spontaneous
  Country: US (occurrence: US)
  Receive Date: 20220323
  Receipt Date: 20220323
  Transmission Date: 20220423
  Serious: Yes (Other)
  Sender: FDA-Public Use
  Company Number: US-GW PHARMA-202203USGW01382

PATIENT
  Sex: Female
  Weight: 10.8 kg

DRUGS (1)
  1. EPIDIOLEX [Suspect]
     Active Substance: CANNABIDIOL
     Indication: Lennox-Gastaut syndrome
     Dosage: 27.78 MG/KG/DAY, 150 MILLIGRAM, BID
     Route: 048
     Dates: start: 2019

REACTIONS (3)
  - Seizure [Unknown]
  - Prescribed overdose [Unknown]
  - Wrong product administered [Unknown]
